FAERS Safety Report 13181603 (Version 1)
Quarter: 2017Q1

REPORT INFORMATION
  Report Type: Spontaneous
  Country: US (occurrence: US)
  Receive Date: 20170202
  Receipt Date: 20170202
  Transmission Date: 20170428
  Serious: Yes (Hospitalization)
  Sender: FDA-Public Use
  Company Number: US-ACORDA-ACO_132969_2017

PATIENT
  Age: 66 Year
  Sex: Male
  Weight: 83.9 kg

DRUGS (13)
  1. LIORESAL [Suspect]
     Active Substance: BACLOFEN
     Indication: STIFF PERSON SYNDROME
     Dosage: 1600 ??G/ML, QD
     Dates: start: 201604
  2. MESTINON [Concomitant]
     Active Substance: PYRIDOSTIGMINE BROMIDE
     Indication: PRODUCT USED FOR UNKNOWN INDICATION
     Dosage: 60MG/5ML
     Route: 065
  3. LASIX [Concomitant]
     Active Substance: FUROSEMIDE
     Indication: PRODUCT USED FOR UNKNOWN INDICATION
     Dosage: 20 MG, BID
     Route: 065
  4. DOXAZOSIN [Concomitant]
     Active Substance: DOXAZOSIN\DOXAZOSIN MESYLATE
     Indication: PRODUCT USED FOR UNKNOWN INDICATION
     Dosage: 2 MG, QD
     Route: 065
  5. LIORESAL [Suspect]
     Active Substance: BACLOFEN
     Indication: MUSCLE SPASTICITY
     Dosage: 1200 ??G, QD
     Route: 037
     Dates: start: 20121218
  6. GABAPENTIN. [Concomitant]
     Active Substance: GABAPENTIN
     Indication: PRODUCT USED FOR UNKNOWN INDICATION
     Dosage: 600 MG, TID
     Route: 065
  7. LIORESAL [Suspect]
     Active Substance: BACLOFEN
     Dosage: 1200 ??G/ML, QD
     Dates: start: 201604
  8. IBUPROFEN. [Suspect]
     Active Substance: IBUPROFEN
     Indication: PRODUCT USED FOR UNKNOWN INDICATION
     Dosage: UNK
     Route: 065
  9. ZANAFLEX [Suspect]
     Active Substance: TIZANIDINE HYDROCHLORIDE
     Indication: MUSCLE SPASTICITY
     Dosage: UNK
     Route: 048
     Dates: end: 20160411
  10. LIORESAL [Suspect]
     Active Substance: BACLOFEN
     Dosage: 2000 ??G/ML, QD
     Route: 065
     Dates: start: 201604
  11. LIORESAL [Suspect]
     Active Substance: BACLOFEN
     Dosage: 1675 UNK, UNK
     Route: 065
     Dates: start: 2016, end: 2016
  12. PAIN MEDICATIONS (UNSPECIFIED) [Suspect]
     Active Substance: UNSPECIFIED INGREDIENT
     Indication: PAIN
     Dosage: UNK
     Route: 065
  13. VALIUM [Concomitant]
     Active Substance: DIAZEPAM
     Indication: PRODUCT USED FOR UNKNOWN INDICATION
     Dosage: 5 MG, TID
     Route: 065

REACTIONS (14)
  - Respiratory rate decreased [Recovering/Resolving]
  - Memory impairment [Recovering/Resolving]
  - Heart rate decreased [Recovering/Resolving]
  - Body temperature decreased [Recovering/Resolving]
  - Pain [Unknown]
  - Personality disorder [Recovered/Resolved]
  - Hallucination, auditory [Recovered/Resolved]
  - Muscle spasms [Unknown]
  - Hypertension [Recovered/Resolved]
  - Unresponsive to stimuli [Recovering/Resolving]
  - Hallucination [Recovered/Resolved]
  - Arrhythmia [Recovered/Resolved]
  - Overdose [Recovered/Resolved]
  - Psychotic disorder [Unknown]

NARRATIVE: CASE EVENT DATE: 201604
